FAERS Safety Report 15571390 (Version 8)
Quarter: 2021Q2

REPORT INFORMATION
  Report Type: Report from Study
  Country: US (occurrence: US)
  Receive Date: 20181031
  Receipt Date: 20210525
  Transmission Date: 20210716
  Serious: Yes (Other)
  Sender: FDA-Public Use
  Company Number: US-INCYTE CORPORATION-2018IN009760

PATIENT

DRUGS (16)
  1. JAKAFI [Suspect]
     Active Substance: RUXOLITINIB
     Dosage: 5 MG, QD (MON ? WED) / 5 MG, BID (THU ? SUN)
     Route: 048
  2. JAKAFI [Suspect]
     Active Substance: RUXOLITINIB
     Dosage: 5 MILLIGRAM, BID
     Route: 048
     Dates: start: 202103
  3. KLOR?CON [Concomitant]
     Active Substance: POTASSIUM CHLORIDE
     Indication: PRODUCT USED FOR UNKNOWN INDICATION
     Route: 065
  4. FUROSEMIDE. [Concomitant]
     Active Substance: FUROSEMIDE
     Indication: PRODUCT USED FOR UNKNOWN INDICATION
     Route: 065
  5. JAKAFI [Suspect]
     Active Substance: RUXOLITINIB
     Dosage: 5 MG QD (MON AND  TUES), 5 MG BID (WEDS TO SUN)
     Route: 048
  6. METOPROLOL. [Concomitant]
     Active Substance: METOPROLOL
     Indication: PRODUCT USED FOR UNKNOWN INDICATION
     Route: 065
  7. JAKAFI [Suspect]
     Active Substance: RUXOLITINIB
     Indication: MYELOFIBROSIS
     Dosage: 5 MILLIGRAM, QD
     Route: 048
     Dates: start: 20170823
  8. JAKAFI [Suspect]
     Active Substance: RUXOLITINIB
     Dosage: 5 MG, QD (MON ? THU) / 5 MG, BID (FRI ? SUN)
     Route: 048
  9. DOXYCYCLINE. [Concomitant]
     Active Substance: DOXYCYCLINE
     Indication: PRODUCT USED FOR UNKNOWN INDICATION
     Route: 065
  10. FLUTICASONE. [Concomitant]
     Active Substance: FLUTICASONE
     Indication: PRODUCT USED FOR UNKNOWN INDICATION
     Route: 065
  11. JAKAFI [Suspect]
     Active Substance: RUXOLITINIB
     Dosage: 5 MG, QD (MON ? FRI) / 5 MG, BID (SAT ? SUN)
     Route: 048
  12. ALLOPURINOL. [Concomitant]
     Active Substance: ALLOPURINOL
     Indication: PRODUCT USED FOR UNKNOWN INDICATION
     Route: 065
  13. JAKAFI [Suspect]
     Active Substance: RUXOLITINIB
     Dosage: 5 MG, QD (MON ? SAT) / 5 MG, BID (SUN)
     Route: 048
  14. ATORVASTATIN [Concomitant]
     Active Substance: ATORVASTATIN
     Indication: PRODUCT USED FOR UNKNOWN INDICATION
     Route: 065
  15. AMLODIPINE [Concomitant]
     Active Substance: AMLODIPINE BESYLATE
     Indication: PRODUCT USED FOR UNKNOWN INDICATION
     Route: 065
  16. ALBUTEROL                          /00139501/ [Concomitant]
     Active Substance: ALBUTEROL
     Indication: PRODUCT USED FOR UNKNOWN INDICATION
     Route: 065

REACTIONS (12)
  - Rash macular [Unknown]
  - Muscular weakness [Not Recovered/Not Resolved]
  - Malignant melanoma [Unknown]
  - Mass [Not Recovered/Not Resolved]
  - Increased tendency to bruise [Not Recovered/Not Resolved]
  - Fatigue [Not Recovered/Not Resolved]
  - Acrochordon [Not Recovered/Not Resolved]
  - Skin discolouration [Unknown]
  - Contusion [Not Recovered/Not Resolved]
  - Spleen disorder [Not Recovered/Not Resolved]
  - Oropharyngeal pain [Unknown]
  - Back pain [Not Recovered/Not Resolved]

NARRATIVE: CASE EVENT DATE: 201811
